FAERS Safety Report 8682216 (Version 3)
Quarter: 2013Q3

REPORT INFORMATION
  Report Type: Spontaneous
  Country: US (occurrence: US)
  Receive Date: 20120725
  Receipt Date: 20130718
  Transmission Date: 20140515
  Serious: Yes (Hospitalization)
  Sender: FDA-Public Use
  Company Number: US-JNJFOC-20120708415

PATIENT
  Age: 32 Year
  Sex: Female
  Weight: 82.56 kg

DRUGS (6)
  1. REMICADE [Suspect]
     Indication: PSORIATIC ARTHROPATHY
     Dosage: HAD RECEIVED 2 INFUSIONS PRIOR TO EVENTS, AND APPROXIMATELY 8 SINCE
     Route: 042
     Dates: start: 20120614
  2. REMICADE [Suspect]
     Indication: PSORIATIC ARTHROPATHY
     Dosage: 0,2,6,EVERY 8
     Route: 042
     Dates: start: 20120601
  3. COUMADIN [Concomitant]
     Route: 065
  4. PREDNISONE [Concomitant]
     Indication: PSORIATIC ARTHROPATHY
     Route: 065
  5. FISH OIL [Concomitant]
     Route: 065
  6. MULTIVITAMINS [Concomitant]
     Route: 065

REACTIONS (3)
  - Pulmonary embolism [Recovered/Resolved]
  - Oedema peripheral [Unknown]
  - Pain in extremity [Unknown]
